FAERS Safety Report 8049341-X (Version None)
Quarter: 2012Q1

REPORT INFORMATION
  Report Type: 
  Country: None (occurrence: None)
  Receive Date: 20120117
  Receipt Date: 20120113
  Transmission Date: 20120608
  Serious: Yes (Other)
  Sender: FDA-Public Use
  Company Number: US-JNJFOC-20120105107

PATIENT
  Sex: Female
  Weight: 81.65 kg

DRUGS (4)
  1. ORTHO TRI-CYCLEN LO [Suspect]
     Route: 048
     Dates: start: 20070101
  2. ORTHO TRI-CYCLEN LO [Suspect]
     Route: 048
     Dates: start: 20111001
  3. ANTI-ASTHMA INHALER [Concomitant]
     Indication: ASTHMA
     Route: 065
  4. ORTHO TRI-CYCLEN LO [Suspect]
     Indication: CONTRACEPTION
     Route: 048
     Dates: end: 20060101

REACTIONS (7)
  - ROAD TRAFFIC ACCIDENT [None]
  - METRORRHAGIA [None]
  - OPTIC NEURITIS [None]
  - VAGINAL HAEMORRHAGE [None]
  - CENTRAL NERVOUS SYSTEM LESION [None]
  - ABNORMAL DREAMS [None]
  - MULTIPLE SCLEROSIS [None]
